FAERS Safety Report 23944458 (Version 4)
Quarter: 2024Q2

REPORT INFORMATION
  Report Type: Spontaneous
  Country: CA (occurrence: CA)
  Receive Date: 20240606
  Receipt Date: 20240619
  Transmission Date: 20240716
  Serious: Yes (Other)
  Sender: FDA-Public Use
  Company Number: CA-PFIZER INC-202400180711

PATIENT

DRUGS (5)
  1. INFLECTRA [Suspect]
     Active Substance: INFLIXIMAB-DYYB
     Indication: Crohn^s disease
     Dosage: 5 MG/KG, EVERY 8 WEEK, INDUCTION WEEK 0, 2, 6 THEN Q 8 WEEKS - ROUNDED NEAREST VIAL
     Route: 042
     Dates: start: 20220613, end: 20240108
  2. INFLECTRA [Suspect]
     Active Substance: INFLIXIMAB-DYYB
     Dosage: 5 MG/KG, EVERY 6 WEEKS
     Route: 042
     Dates: start: 20240223
  3. INFLECTRA [Suspect]
     Active Substance: INFLIXIMAB-DYYB
     Dosage: 5 MG/KG, EVERY 6 WEEKS
     Route: 042
     Dates: start: 20240411
  4. INFLECTRA [Suspect]
     Active Substance: INFLIXIMAB-DYYB
     Dosage: 5 MG/KG, EVERY 6 WEEKS
     Route: 042
     Dates: start: 20240528
  5. INFLECTRA [Suspect]
     Active Substance: INFLIXIMAB-DYYB
     Dosage: 5 MG/KG, EVERY 6 WEEKS, (400MG AFTER 8 WEEKS AND 6 DAYS)
     Route: 042
     Dates: start: 20240612

REACTIONS (4)
  - Limb crushing injury [Recovered/Resolved]
  - Onycholysis [Recovered/Resolved]
  - Skin laceration [Recovered/Resolved]
  - Bloody discharge [Recovered/Resolved]

NARRATIVE: CASE EVENT DATE: 20240101
